FAERS Safety Report 9887511 (Version 1)
Quarter: 2014Q1

REPORT INFORMATION
  Report Type: Spontaneous
  Country: US (occurrence: None)
  Receive Date: 20140207
  Receipt Date: 20140207
  Transmission Date: 20141002
  Serious: Yes (Hospitalization)
  Sender: FDA-Public Use
  Company Number: None

PATIENT
  Age: 50 Year
  Sex: Male
  Weight: 47.17 kg

DRUGS (2)
  1. MELOXICAM [Suspect]
     Indication: PAIN
     Route: 048
     Dates: start: 20100621, end: 20110613
  2. HYDROCHLOROTHIAZIDE/LISINOPRIL [Suspect]
     Indication: HYPERTENSION
     Route: 048
     Dates: start: 20041028, end: 20110613

REACTIONS (3)
  - Renal failure acute [None]
  - Dehydration [None]
  - Abdominal pain [None]
